FAERS Safety Report 17662878 (Version 2)
Quarter: 2023Q2

REPORT INFORMATION
  Report Type: Spontaneous
  Country: PL (occurrence: PL)
  Receive Date: 20200413
  Receipt Date: 20230612
  Transmission Date: 20230721
  Serious: Yes (Death, Other)
  Sender: FDA-Public Use
  Company Number: PL-002147023-NVSC2020PL071878

PATIENT

DRUGS (40)
  1. DICLOFENAC [Suspect]
     Active Substance: DICLOFENAC
     Indication: Pain
     Dosage: 100 MG, BID
     Route: 065
  2. FENTANYL [Suspect]
     Active Substance: FENTANYL
     Indication: Pain
     Dosage: 400 MICROGRAM
     Route: 002
  3. FENTANYL [Suspect]
     Active Substance: FENTANYL
     Indication: Cancer pain
     Dosage: 50 MICROGRAM, Q1HR
  4. FENTANYL [Suspect]
     Active Substance: FENTANYL
     Dosage: 50 MICROGRAM
     Dates: start: 201603, end: 2016
  5. FENTANYL [Suspect]
     Active Substance: FENTANYL
     Dosage: 50 MICROGRAM, Q72H
     Dates: start: 2016, end: 2016
  6. FENTANYL [Suspect]
     Active Substance: FENTANYL
     Dosage: 200 MICROGRAM, Q1HR
  7. FENTANYL [Suspect]
     Active Substance: FENTANYL
     Dosage: 200 MICROGRAM
  8. FENTANYL [Suspect]
     Active Substance: FENTANYL
     Indication: Cancer pain
     Dosage: 200 MICROGRAM/3-4 TIMES DAILY
     Route: 048
  9. FENTANYL [Suspect]
     Active Substance: FENTANYL
     Dosage: 400 MICROGRAM/3-4 TIMES DAILY
  10. TRAMADOL [Suspect]
     Active Substance: TRAMADOL
     Indication: Pain
     Dosage: 37.5 MG, ADHOC UPTO 4 TIMES DAILY
     Route: 065
  11. ACETAMINOPHEN [Suspect]
     Active Substance: ACETAMINOPHEN
     Indication: Pain
     Dosage: 375 MG, ADHOC UPTO 4 TIMES DAILY
     Route: 065
  12. DOCETAXEL [Suspect]
     Active Substance: DOCETAXEL
     Indication: Product used for unknown indication
     Dosage: 50 MILLIGRAM/SQ. METER
  13. DOCETAXEL [Suspect]
     Active Substance: DOCETAXEL
     Indication: Chemotherapy
  14. LEUPROLIDE ACETATE [Suspect]
     Active Substance: LEUPROLIDE ACETATE
     Indication: Prostate cancer
     Dosage: UNK, Q3MO, ONCE IN 3 MONTHS
     Route: 065
  15. LEUPROLIDE ACETATE [Suspect]
     Active Substance: LEUPROLIDE ACETATE
     Indication: Hormone therapy
     Dosage: UNK, EVERY SIX MONTHS
  16. METAMIZOLE [Concomitant]
     Active Substance: METAMIZOLE
     Indication: Product used for unknown indication
     Dosage: UNK
     Route: 065
  17. GABAPENTIN [Suspect]
     Active Substance: GABAPENTIN
     Indication: Pain
     Dosage: 0.3 GRAM, TID
     Route: 065
     Dates: start: 201603, end: 2016
  18. GABAPENTIN [Suspect]
     Active Substance: GABAPENTIN
     Dosage: 900 MILLIGRAM
  19. GABAPENTIN [Suspect]
     Active Substance: GABAPENTIN
     Dosage: 150 MILLIGRAM, QD
  20. GABAPENTIN [Suspect]
     Active Substance: GABAPENTIN
     Dosage: 300 MILLIGRAM
  21. GABAPENTIN [Suspect]
     Active Substance: GABAPENTIN
     Dosage: UNK
  22. TAPENTADOL [Concomitant]
     Active Substance: TAPENTADOL
     Indication: Product used for unknown indication
     Dosage: 75 MILLIGRAM
     Route: 065
  23. TAPENTADOL [Concomitant]
     Active Substance: TAPENTADOL
     Dosage: 150 MILLIGRAM, QD
  24. TAPENTADOL [Concomitant]
     Active Substance: TAPENTADOL
     Dosage: 100 MILLIGRAM, QD
  25. TAPENTADOL [Concomitant]
     Active Substance: TAPENTADOL
     Dosage: 0.1 MILLIGRAM, QD
  26. PREGABALIN [Concomitant]
     Active Substance: PREGABALIN
     Indication: Product used for unknown indication
     Dosage: 0.15 GRAM, QD
     Route: 065
  27. PREGABALIN [Concomitant]
     Active Substance: PREGABALIN
     Dosage: 0.15 GRAM, BID
  28. ABIRATERONE [Concomitant]
     Active Substance: ABIRATERONE
     Indication: Product used for unknown indication
     Dosage: UNK
     Route: 065
  29. VITAMIN D3 [Concomitant]
     Active Substance: CHOLECALCIFEROL
     Indication: Product used for unknown indication
     Dosage: 4000 INTERNATIONAL UNIT, QD
     Dates: start: 201603
  30. IRON [Concomitant]
     Active Substance: IRON
     Indication: Product used for unknown indication
     Dosage: UNK
     Route: 065
  31. NIMESULIDE [Concomitant]
     Active Substance: NIMESULIDE
     Indication: Product used for unknown indication
     Dosage: UNK
  32. DENOSUMAB [Suspect]
     Active Substance: DENOSUMAB
     Indication: Prostate cancer
     Dosage: 120 MILLIGRAM
     Route: 058
     Dates: start: 201603
  33. MORPHINE [Concomitant]
     Active Substance: MORPHINE
     Indication: Pain
     Dosage: 20 MILLIGRAM
     Route: 065
  34. MORPHINE [Concomitant]
     Active Substance: MORPHINE
     Indication: Cancer pain
     Dosage: 0.02 GRAM, QID
     Dates: start: 201603
  35. DEXKETOPROFEN [Concomitant]
     Active Substance: DEXKETOPROFEN
     Indication: Product used for unknown indication
     Dosage: 1 DOSAGE FORM, TID
  36. KETOPROFEN [Suspect]
     Active Substance: KETOPROFEN
     Indication: Pain
     Dosage: 100 MILLIGRAM, BID
     Route: 065
     Dates: start: 201603
  37. KETOPROFEN [Suspect]
     Active Substance: KETOPROFEN
     Dosage: 200 MILLIGRAM, QD
  38. KETOPROFEN [Suspect]
     Active Substance: KETOPROFEN
     Dosage: 100 MILLIGRAM, BID -MAR-2016
     Dates: start: 201605
  39. MORPHINE SULFATE [Suspect]
     Active Substance: MORPHINE SULFATE
     Indication: Pain
     Dosage: 0.02 GRAM
     Route: 065
     Dates: start: 201603
  40. BICALUTAMIDE [Suspect]
     Active Substance: BICALUTAMIDE
     Indication: Prostate cancer
     Dosage: 50 MILLIGRAM, QD
     Route: 065
     Dates: start: 201603

REACTIONS (17)
  - Polyneuropathy [Fatal]
  - Malignant neoplasm progression [Unknown]
  - Prostate cancer [Unknown]
  - Metastases to lung [Unknown]
  - Chronic kidney disease [Fatal]
  - Toxicity to various agents [Recovered/Resolved]
  - Polyneuropathy in malignant disease [Unknown]
  - Confusional state [Fatal]
  - Constipation [Fatal]
  - Hyperaesthesia [Recovered/Resolved]
  - Decreased appetite [Fatal]
  - Allodynia [Fatal]
  - Drug dependence [Unknown]
  - Quality of life decreased [Fatal]
  - Anaemia [Unknown]
  - Metastases to bone [Unknown]
  - Dermatitis allergic [Fatal]

NARRATIVE: CASE EVENT DATE: 20160101
